FAERS Safety Report 16182706 (Version 1)
Quarter: 2019Q2

REPORT INFORMATION
  Report Type: Spontaneous
  Country: US (occurrence: US)
  Receive Date: 20190411
  Receipt Date: 20190411
  Transmission Date: 20190711
  Serious: No
  Sender: FDA-Public Use
  Company Number: US-BEH-2019101359

PATIENT
  Sex: Female

DRUGS (3)
  1. HIZENTRA [Suspect]
     Active Substance: HUMAN IMMUNOGLOBULIN G
     Dosage: 10 G, QW
     Route: 058
     Dates: start: 20190326
  2. HIZENTRA [Suspect]
     Active Substance: HUMAN IMMUNOGLOBULIN G
     Dosage: 4 G, QW
     Route: 058
     Dates: start: 20190326
  3. HIZENTRA [Suspect]
     Active Substance: HUMAN IMMUNOGLOBULIN G
     Indication: NEUROPATHY PERIPHERAL
     Dosage: 1 G, QW
     Route: 058
     Dates: start: 20190326

REACTIONS (5)
  - Infusion site extravasation [Unknown]
  - Infusion site erythema [Unknown]
  - Infusion site swelling [Unknown]
  - Infusion site nodule [Unknown]
  - Infusion site pruritus [Unknown]
